FAERS Safety Report 19840856 (Version 1)
Quarter: 2021Q3

REPORT INFORMATION
  Report Type: Spontaneous
  Country: JP (occurrence: JP)
  Receive Date: 20210916
  Receipt Date: 20210916
  Transmission Date: 20211014
  Serious: Yes (Hospitalization)
  Sender: FDA-Public Use
  Company Number: JP-EAGLE PHARMACEUTICALS, INC.-JP-2021EAG000110

PATIENT

DRUGS (6)
  1. RITUXIMAB BS [Concomitant]
     Active Substance: RITUXIMAB
     Indication: DIFFUSE LARGE B-CELL LYMPHOMA RECURRENT
     Dosage: UNK (CYCLE 1)
     Route: 041
     Dates: start: 20210615
  2. RITUXIMAB BS [Concomitant]
     Active Substance: RITUXIMAB
     Dosage: UNK (CYCLE 3)
     Route: 041
     Dates: start: 2021
  3. BENDAMUSTINE HYDROCHLORIDE. [Suspect]
     Active Substance: BENDAMUSTINE HYDROCHLORIDE
     Indication: DIFFUSE LARGE B-CELL LYMPHOMA
     Dosage: UNK (CYCLE 2)
     Route: 041
     Dates: start: 2021
  4. BENDAMUSTINE HYDROCHLORIDE. [Suspect]
     Active Substance: BENDAMUSTINE HYDROCHLORIDE
     Indication: DIFFUSE LARGE B-CELL LYMPHOMA RECURRENT
     Dosage: 90 MG/M2 (CYCLE 1)
     Route: 041
     Dates: start: 20210615, end: 20210616
  5. BENDAMUSTINE HYDROCHLORIDE. [Suspect]
     Active Substance: BENDAMUSTINE HYDROCHLORIDE
     Dosage: 90 MG/M2 (CYCLE 3)
     Route: 041
     Dates: start: 2021
  6. RITUXIMAB BS [Concomitant]
     Active Substance: RITUXIMAB
     Dosage: UNK (CYCLE 2)
     Route: 041
     Dates: start: 2021

REACTIONS (4)
  - Neutrophil count decreased [Recovering/Resolving]
  - Neutrophil count decreased [Not Recovered/Not Resolved]
  - Pancytopenia [Not Recovered/Not Resolved]
  - Pseudomembranous colitis [Recovered/Resolved]

NARRATIVE: CASE EVENT DATE: 2021
